FAERS Safety Report 12584395 (Version 1)
Quarter: 2016Q3

REPORT INFORMATION
  Report Type: Spontaneous
  Country: US (occurrence: US)
  Receive Date: 20160722
  Receipt Date: 20160722
  Transmission Date: 20161109
  Serious: No
  Sender: FDA-Public Use
  Company Number: US-FRI-1000084299

PATIENT
  Age: 61 Year
  Sex: Female

DRUGS (1)
  1. NAMENDA XR [Suspect]
     Active Substance: MEMANTINE HYDROCHLORIDE
     Dosage: 7MG
     Route: 048
     Dates: start: 20151217, end: 20151219

REACTIONS (3)
  - Feeling abnormal [Unknown]
  - Accidental overdose [Recovered/Resolved]
  - Confusional state [Unknown]

NARRATIVE: CASE EVENT DATE: 201512
